FAERS Safety Report 15789289 (Version 1)
Quarter: 2018Q4

REPORT INFORMATION
  Report Type: Spontaneous
  Country: US (occurrence: US)
  Receive Date: 20181213
  Receipt Date: 20181213
  Transmission Date: 20190205
  Serious: Yes (Hospitalization)
  Sender: FDA-Public Use
  Company Number: None

PATIENT
  Age: 47 Year
  Sex: Male
  Weight: 143.8 kg

DRUGS (6)
  1. RITUXIMAB. [Suspect]
     Active Substance: RITUXIMAB
  2. CYCLOPHOSPHAMIDE. [Suspect]
     Active Substance: CYCLOPHOSPHAMIDE
  3. PREDNISOLONE. [Suspect]
     Active Substance: PREDNISOLONE
  4. ONCOVIN [Suspect]
     Active Substance: VINCRISTINE SULFATE
  5. VITAMIN D3 [Suspect]
     Active Substance: CHOLECALCIFEROL
     Indication: VITAMIN D DEFICIENCY
     Route: 048
     Dates: start: 20181004
  6. DOXORUBICIN [Suspect]
     Active Substance: DOXORUBICIN

REACTIONS (8)
  - Staphylococcal infection [None]
  - Haemoglobin decreased [None]
  - Bacterial test positive [None]
  - Rhinovirus infection [None]
  - Mass [None]
  - Cellulitis [None]
  - Culture positive [None]
  - Packed red blood cell transfusion [None]

NARRATIVE: CASE EVENT DATE: 20181204
